FAERS Safety Report 16661268 (Version 4)
Quarter: 2019Q3

REPORT INFORMATION
  Report Type: Report from Study
  Country: MA (occurrence: MA)
  Receive Date: 20190802
  Receipt Date: 20190913
  Transmission Date: 20191004
  Serious: Yes (Hospitalization)
  Sender: FDA-Public Use
  Company Number: MA-EMD SERONO-9108576

PATIENT
  Age: 42 Year
  Sex: Female

DRUGS (3)
  1. REBIF [Suspect]
     Active Substance: INTERFERON BETA-1A
     Route: 058
     Dates: start: 20190729, end: 201907
  2. REBIF [Suspect]
     Active Substance: INTERFERON BETA-1A
     Dosage: 25 (UNSPECIFIED) (IT IS HALF OF THE DOSE)
     Route: 058
     Dates: start: 201907
  3. REBIF [Suspect]
     Active Substance: INTERFERON BETA-1A
     Indication: PRODUCT USED FOR UNKNOWN INDICATION
     Route: 058
     Dates: start: 20190626, end: 201907

REACTIONS (4)
  - Loss of consciousness [Recovered/Resolved]
  - Off label use [Unknown]
  - Balance disorder [Recovering/Resolving]
  - Pyrexia [Recovering/Resolving]

NARRATIVE: CASE EVENT DATE: 201907
